FAERS Safety Report 22995043 (Version 4)
Quarter: 2024Q3

REPORT INFORMATION
  Report Type: Report from Study
  Country: US (occurrence: US)
  Receive Date: 20230927
  Receipt Date: 20240725
  Transmission Date: 20241016
  Serious: Yes (Other)
  Sender: ABBVIE
  Company Number: US-ABBVIE-5421882

PATIENT
  Age: 79 Year
  Sex: Male

DRUGS (2)
  1. SKYRIZI [Suspect]
     Active Substance: RISANKIZUMAB-RZAA
     Indication: Psoriasis
     Route: 058
     Dates: start: 20220419
  2. SKYRIZI [Suspect]
     Active Substance: RISANKIZUMAB-RZAA
     Route: 058
     Dates: start: 20220510

REACTIONS (10)
  - Fall [Recovering/Resolving]
  - Hypotension [Recovering/Resolving]
  - Psoriasis [Recovering/Resolving]
  - Hip fracture [Recovering/Resolving]
  - Loss of consciousness [Recovering/Resolving]
  - Femur fracture [Recovering/Resolving]
  - Rash papular [Not Recovered/Not Resolved]
  - Myasthenia gravis [Recovering/Resolving]
  - Vision blurred [Recovering/Resolving]
  - Gait disturbance [Recovering/Resolving]

NARRATIVE: CASE EVENT DATE: 20240701
